FAERS Safety Report 7957932-7 (Version None)
Quarter: 2011Q4

REPORT INFORMATION
  Report Type: 
  Country: None (occurrence: None)
  Receive Date: 20111205
  Receipt Date: 20111126
  Transmission Date: 20120403
  Serious: Yes (Hospitalization, Other)
  Sender: FDA-Public Use
  Company Number: US-CEPHALON-US012767

PATIENT
  Sex: Male

DRUGS (8)
  1. NORVASC [Concomitant]
     Route: 048
  2. AMBIEN [Concomitant]
     Route: 048
  3. PROVIGIL [Suspect]
     Indication: FATIGUE
     Route: 048
     Dates: start: 20031125, end: 20031204
  4. VIOXX [Concomitant]
     Route: 048
  5. SUSTIVA [Concomitant]
     Indication: HIV INFECTION
     Route: 048
  6. COMBIVIR [Concomitant]
     Indication: HIV INFECTION
     Route: 048
  7. CELEBREX [Concomitant]
     Route: 048
  8. MONOPRIL [Concomitant]
     Route: 048

REACTIONS (2)
  - LIVER FUNCTION TEST ABNORMAL [None]
  - HYPERSENSITIVITY [None]
